FAERS Safety Report 8518576-1 (Version None)
Quarter: 2012Q3

REPORT INFORMATION
  Report Type: 
  Country: None (occurrence: None)
  Receive Date: 20120718
  Receipt Date: 20120523
  Transmission Date: 20120928
  Serious: Yes (Other)
  Sender: FDA-Public Use
  Company Number: US-BRISTOL-MYERS SQUIBB COMPANY-16625402

PATIENT
  Sex: Female

DRUGS (2)
  1. COUMADIN [Suspect]
     Route: 048
  2. XARELTO [Suspect]
     Indication: ATRIAL FIBRILLATION
     Dosage: FORM: TABS
     Route: 048

REACTIONS (1)
  - HAEMORRHAGE [None]
